FAERS Safety Report 5134414-1 (Version None)
Quarter: 2006Q4

REPORT INFORMATION
  Report Type: 
  Country: None (occurrence: None)
  Receive Date: 20061023
  Receipt Date: 20061023
  Transmission Date: 20070319
  Serious: Yes (Death)
  Sender: FDA-Public Use
  Company Number: None

PATIENT
  Age: 18 Year
  Sex: Male
  Weight: 72.5755 kg

DRUGS (1)
  1. LIPITOR [Suspect]
     Indication: TYPE IIA HYPERLIPIDAEMIA
     Dosage: 20 MG/DAY 1 PER DAY PO
     Route: 048
     Dates: start: 20010328, end: 20030610

REACTIONS (6)
  - ABNORMAL BEHAVIOUR [None]
  - COGNITIVE DISORDER [None]
  - COMPLETED SUICIDE [None]
  - DISTURBANCE IN ATTENTION [None]
  - GUN SHOT WOUND [None]
  - NIGHTMARE [None]
